FAERS Safety Report 25223056 (Version 1)
Quarter: 2025Q2

REPORT INFORMATION
  Report Type: Spontaneous
  Country: ES (occurrence: ES)
  Receive Date: 20250422
  Receipt Date: 20250422
  Transmission Date: 20250717
  Serious: Yes (Hospitalization, Other)
  Sender: Norvium Bioscience
  Company Number: ES-Norvium Bioscience LLC-080058

PATIENT
  Age: 63 Year
  Sex: Female

DRUGS (4)
  1. OLANZAPINE [Suspect]
     Active Substance: OLANZAPINE
     Indication: Psychotic disorder
     Dates: start: 202207
  2. OLANZAPINE PAMOATE [Concomitant]
     Active Substance: OLANZAPINE PAMOATE
     Indication: Psychotic symptom
     Dates: start: 201206
  3. OLANZAPINE [Suspect]
     Active Substance: OLANZAPINE
     Indication: Psychotic behaviour
     Dates: start: 202306
  4. OLANZAPINE [Suspect]
     Active Substance: OLANZAPINE
     Indication: Psychotic behaviour
     Dates: start: 202306

REACTIONS (1)
  - Bicytopenia [Recovered/Resolved]

NARRATIVE: CASE EVENT DATE: 20220701
